FAERS Safety Report 20344063 (Version 5)
Quarter: 2023Q4

REPORT INFORMATION
  Report Type: Report from Study
  Country: US (occurrence: US)
  Receive Date: 20220118
  Receipt Date: 20231218
  Transmission Date: 20240110
  Serious: Yes (Hospitalization, Other)
  Sender: FDA-Public Use
  Company Number: US-Global Blood Therapeutics Inc-US-GBT-22-00219

PATIENT
  Age: 29 Year
  Sex: Female

DRUGS (17)
  1. OXBRYTA [Suspect]
     Active Substance: VOXELOTOR
     Indication: Sickle cell disease
     Dosage: 1500 MG, 1X/DAY
     Route: 048
     Dates: start: 20200401
  2. OXBRYTA [Suspect]
     Active Substance: VOXELOTOR
     Indication: Anaemia
     Dosage: 1000 MG, 1X/DAY
     Dates: start: 20200409, end: 20200629
  3. OXBRYTA [Suspect]
     Active Substance: VOXELOTOR
     Dosage: 1000 MG, 1X/DAY
     Dates: start: 20200729, end: 202101
  4. OXBRYTA [Suspect]
     Active Substance: VOXELOTOR
     Dosage: 1000 MG, 1X/DAY
     Dates: start: 202103, end: 202106
  5. OXBRYTA [Suspect]
     Active Substance: VOXELOTOR
     Dosage: 500 MG, 1X/DAY
     Dates: start: 202106, end: 2021
  6. TYLENOL EXTRA STRENGTH [Concomitant]
     Active Substance: ACETAMINOPHEN
     Indication: Sickle cell disease
     Dosage: 500 MG, Q6H
     Route: 048
     Dates: start: 20180831, end: 20210412
  7. FOLIC ACID [Concomitant]
     Active Substance: FOLIC ACID
     Indication: Sickle cell disease
     Dosage: 1 MG, 1X/DAY
     Route: 048
     Dates: start: 20160830
  8. VOLTARENE (DICLOFENAC SODIUM) [Concomitant]
     Active Substance: DICLOFENAC SODIUM
     Dosage: 50 MG, BID
     Route: 048
     Dates: start: 20210224, end: 20210325
  9. VITAMINS NOS [Concomitant]
     Active Substance: VITAMINS
     Dosage: 1 TABLET;DOSE:
     Dates: start: 20210101, end: 20211231
  10. HYDROXYUREA [Concomitant]
     Active Substance: HYDROXYUREA
     Route: 048
     Dates: start: 20211013
  11. LOSARTAN [Concomitant]
     Active Substance: LOSARTAN
     Route: 048
     Dates: start: 20191212
  12. albuterol HFA (ventolin HFA) [Concomitant]
     Dosage: 90 MCG/ACTUATION INHALER, Q4H PRN;DOSE:
     Route: 055
     Dates: start: 20200103
  13. amoxicillin clavulanate(augmentin) [Concomitant]
     Dosage: 875-125 MG, Q12H
     Route: 048
     Dates: start: 20210219, end: 20210227
  14. DEXTROMETHORPHAN [Concomitant]
     Active Substance: DEXTROMETHORPHAN
     Dosage: 30 MG, QID
     Route: 048
     Dates: start: 20201220, end: 20210129
  15. COLACE [Concomitant]
     Active Substance: DOCUSATE SODIUM
     Dosage: 100 MG, TID
     Route: 048
     Dates: start: 20210219, end: 20210301
  16. COLACE [Concomitant]
     Active Substance: DOCUSATE SODIUM
     Dosage: 100 MG, TID
     Route: 048
     Dates: start: 20210402
  17. cholecalciferol, vitamin D3 [Concomitant]
     Indication: Sickle cell disease
     Dosage: 2000 IU, QD
     Route: 048
     Dates: start: 20191017, end: 20210707

REACTIONS (10)
  - Alanine aminotransferase increased [Recovered/Resolved]
  - Uterine leiomyoma [Recovered/Resolved]
  - Nausea [Recovered/Resolved]
  - Abdominal discomfort [Recovered/Resolved]
  - Diarrhoea [Recovered/Resolved]
  - Abdominal pain [Unknown]
  - Diarrhoea [Recovered/Resolved]
  - Dizziness [Recovered/Resolved]
  - Abdominal pain upper [Recovered/Resolved]
  - Nausea [Recovered/Resolved]

NARRATIVE: CASE EVENT DATE: 20200101
